FAERS Safety Report 6628325-X (Version None)
Quarter: 2010Q1

REPORT INFORMATION
  Report Type: 
  Country: None (occurrence: None)
  Receive Date: 20100311
  Receipt Date: 20100226
  Transmission Date: 20100710
  Serious: Yes (Hospitalization)
  Sender: FDA-Public Use
  Company Number: JP-PFIZER INC-2010029419

PATIENT
  Age: 45 Year
  Sex: Female

DRUGS (5)
  1. CELECOX [Suspect]
     Dosage: 200 MG, UNKNOWN/D
     Route: 048
  2. MERISLON [Suspect]
     Dosage: UNK
     Route: 048
  3. PROGRAF [Concomitant]
     Dosage: UNK
  4. CELLCEPT [Concomitant]
  5. MEDROL [Concomitant]
     Dosage: UNK

REACTIONS (1)
  - ALTERED STATE OF CONSCIOUSNESS [None]
